FAERS Safety Report 12732688 (Version 1)
Quarter: 2016Q3

REPORT INFORMATION
  Report Type: Spontaneous
  Country: US (occurrence: US)
  Receive Date: 20160912
  Receipt Date: 20160912
  Transmission Date: 20161109
  Serious: No
  Sender: FDA-Public Use
  Company Number: US-JNJFOC-20160810949

PATIENT
  Sex: Female
  Weight: 72.12 kg

DRUGS (3)
  1. XARELTO [Suspect]
     Active Substance: RIVAROXABAN
     Indication: DEEP VEIN THROMBOSIS
     Route: 048
     Dates: start: 20160722
  2. PROZAC [Concomitant]
     Active Substance: FLUOXETINE HYDROCHLORIDE
     Indication: DEPRESSION
     Route: 048
  3. ESTROGEN [Concomitant]
     Active Substance: ESTRONE\SUS SCROFA OVARY
     Route: 065

REACTIONS (7)
  - Headache [Not Recovered/Not Resolved]
  - Wound haemorrhage [Unknown]
  - Depression [Not Recovered/Not Resolved]
  - Crying [Not Recovered/Not Resolved]
  - Head banging [Unknown]
  - Laceration [Unknown]
  - Skin haemorrhage [Unknown]

NARRATIVE: CASE EVENT DATE: 2016
